FAERS Safety Report 8531200-7 (Version None)
Quarter: 2012Q3

REPORT INFORMATION
  Report Type: 
  Country: None (occurrence: None)
  Receive Date: 20120723
  Receipt Date: 20120710
  Transmission Date: 20120928
  Serious: Yes (Hospitalization, Other)
  Sender: FDA-Public Use
  Company Number: FR-ELI_LILLY_AND_COMPANY-FR201206004150

PATIENT
  Age: 45 Year
  Sex: Female

DRUGS (3)
  1. CYMBALTA [Suspect]
     Dosage: 30 MG, QD
     Route: 048
     Dates: end: 20120603
  2. CYMBALTA [Suspect]
     Dosage: 60 MG, QD
     Route: 048
     Dates: end: 20120603
  3. CYMBALTA [Suspect]
     Indication: DEPRESSION
     Dosage: 60 MG, QD
     Route: 048
     Dates: start: 20120420, end: 20120430

REACTIONS (15)
  - ABDOMINAL PAIN [None]
  - URINARY TRACT INFECTION [None]
  - WEIGHT DECREASED [None]
  - BILIARY ABSCESS [None]
  - PYREXIA [None]
  - ASTHENIA [None]
  - DECREASED APPETITE [None]
  - GENERAL PHYSICAL HEALTH DETERIORATION [None]
  - HEPATOMEGALY [None]
  - INSOMNIA [None]
  - VOMITING [None]
  - OFF LABEL USE [None]
  - DEPRESSED MOOD [None]
  - CHOLELITHIASIS [None]
  - HAEMATURIA [None]
